FAERS Safety Report 8616230-9 (Version None)
Quarter: 2012Q3

REPORT INFORMATION
  Report Type: 
  Country: None (occurrence: None)
  Receive Date: 20120823
  Receipt Date: 20120820
  Transmission Date: 20120928
  Serious: Yes (Death)
  Sender: FDA-Public Use
  Company Number: GB-ROCHE-1104719

PATIENT
  Sex: Male
  Weight: 82 kg

DRUGS (4)
  1. EPIRUBICIN [Suspect]
     Indication: GASTRIC CANCER
     Dosage: MOST RECENT DOSE: 02/MAY/2012; MOST RECENT DOSE: 96 MG
     Route: 042
     Dates: start: 20120321
  2. XELODA [Suspect]
     Indication: GASTRIC CANCER
     Dosage: MOST RECENT DOSE: 09/MAY/2012 AND MOST RECENT DOSE: 2500 MG DAILY
     Route: 048
     Dates: start: 20120321
  3. CISPLATIN [Suspect]
     Indication: GASTRIC CANCER
     Dosage: MOST RECENT DOSE: 02/MAY/2012; MOST RECENT DOSE: 110 MG
     Route: 042
     Dates: start: 20120321
  4. AVASTIN [Suspect]
     Indication: GASTRIC CANCER
     Dosage: MOST RECENT DOSE: 02/MAY/2012; MOST RECENT DOSE: 577 MG
     Route: 042
     Dates: start: 20120321

REACTIONS (1)
  - CORONARY ARTERY DISEASE [None]
